FAERS Safety Report 12256821 (Version 1)
Quarter: 2016Q2

REPORT INFORMATION
  Report Type: Spontaneous
  Country: US (occurrence: US)
  Receive Date: 20160412
  Receipt Date: 20160412
  Transmission Date: 20160815
  Serious: No
  Sender: FDA-Public Use
  Company Number: US-GLAXOSMITHKLINE-US2016043168

PATIENT
  Age: 49 Year
  Sex: Female

DRUGS (4)
  1. PREDNISONE. [Concomitant]
     Active Substance: PREDNISONE
  2. FOLIC ACID. [Concomitant]
     Active Substance: FOLIC ACID
  3. BENLYSTA [Suspect]
     Active Substance: BELIMUMAB
     Indication: AUTOIMMUNE DISORDER
     Dosage: 120 MG, Z
     Route: 042
     Dates: start: 201602
  4. METHOTREXATE [Concomitant]
     Active Substance: METHOTREXATE

REACTIONS (4)
  - Dysphonia [Not Recovered/Not Resolved]
  - Gastrooesophageal reflux disease [Not Recovered/Not Resolved]
  - Pharyngeal oedema [Not Recovered/Not Resolved]
  - Pharyngeal erythema [Not Recovered/Not Resolved]

NARRATIVE: CASE EVENT DATE: 20160307
